FAERS Safety Report 8327929-6 (Version None)
Quarter: 2012Q2

REPORT INFORMATION
  Report Type: 
  Country: None (occurrence: None)
  Receive Date: 20120430
  Receipt Date: 20120413
  Transmission Date: 20120825
  Serious: Yes (Death)
  Sender: FDA-Public Use
  Company Number: UTC-017748

PATIENT
  Age: 52 Year
  Sex: Female
  Weight: 98.18 kg

DRUGS (3)
  1. ADCIRCA [Concomitant]
  2. REVATIO [Concomitant]
  3. REMODULIN [Suspect]
     Indication: COR PULMONALE CHRONIC
     Dosage: 106.56 UG/KG (0.074 UG/KG, 1 IN 1 MIN), INTRAVENOUS
     Route: 042
     Dates: start: 20071019

REACTIONS (1)
  - DEATH [None]
